FAERS Safety Report 10775611 (Version 1)
Quarter: 2015Q1

REPORT INFORMATION
  Report Type: Spontaneous
  Country: US (occurrence: None)
  Receive Date: 20150205
  Receipt Date: 20150205
  Transmission Date: 20150721
  Serious: Yes (Other)
  Sender: FDA-Public Use
  Company Number: 201501168

PATIENT
  Age: 64 Year
  Sex: Male

DRUGS (1)
  1. TESTIM [Suspect]
     Active Substance: TESTOSTERONE
     Route: 062
     Dates: start: 201004

REACTIONS (11)
  - Atrial fibrillation [None]
  - Cerebrovascular accident [None]
  - Fear [None]
  - Economic problem [None]
  - Cardiovascular disorder [None]
  - Cognitive disorder [None]
  - Anhedonia [None]
  - Unevaluable event [None]
  - Intracardiac thrombus [None]
  - Pulmonary embolism [None]
  - Nervous system disorder [None]

NARRATIVE: CASE EVENT DATE: 201104
